FAERS Safety Report 8111834 (Version 7)
Quarter: 2013Q1

REPORT INFORMATION
  Report Type: Spontaneous
  Country: US (occurrence: US)
  Receive Date: 20110829
  Receipt Date: 20130116
  Transmission Date: 20140127
  Serious: Yes (Other)
  Sender: FDA-Public Use
  Company Number: US-ASTRAZENECA-2011SE04663

PATIENT
  Age: 71 Year
  Sex: Female
  Weight: 73.5 kg

DRUGS (21)
  1. SEROQUEL [Suspect]
     Indication: INSOMNIA
     Route: 048
     Dates: start: 2003
  2. SEROQUEL [Suspect]
     Indication: SLEEP DISORDER
     Route: 048
     Dates: start: 2003
  3. SEROQUEL [Suspect]
     Indication: POST-TRAUMATIC STRESS DISORDER
     Route: 048
     Dates: start: 2003
  4. SEROQUEL [Suspect]
     Indication: INSOMNIA
     Route: 048
  5. SEROQUEL [Suspect]
     Indication: SLEEP DISORDER
     Route: 048
  6. SEROQUEL [Suspect]
     Indication: POST-TRAUMATIC STRESS DISORDER
     Route: 048
  7. SEROQUEL [Suspect]
     Indication: INSOMNIA
     Route: 048
     Dates: start: 2003
  8. SEROQUEL [Suspect]
     Indication: SLEEP DISORDER
     Route: 048
     Dates: start: 2003
  9. SEROQUEL [Suspect]
     Indication: POST-TRAUMATIC STRESS DISORDER
     Route: 048
     Dates: start: 2003
  10. SEROQUEL [Suspect]
     Indication: INSOMNIA
     Route: 048
  11. SEROQUEL [Suspect]
     Indication: SLEEP DISORDER
     Route: 048
  12. SEROQUEL [Suspect]
     Indication: POST-TRAUMATIC STRESS DISORDER
     Route: 048
  13. ZYPREXIA [Suspect]
     Route: 065
  14. METOPROLOL [Concomitant]
     Indication: HYPERTENSION
     Dosage: 50 MG IN THE MORNING AND AT BEDTIME
     Route: 048
     Dates: start: 20080901
  15. METOPROLOL [Concomitant]
     Indication: HYPERTENSION
     Dosage: 50 MG IN THE MORNING
     Route: 048
  16. METOPROLOL [Concomitant]
     Indication: HYPERTENSION
     Dosage: 100 ER
  17. PLAVIX [Concomitant]
  18. SIMVASTATIN [Concomitant]
  19. LEVOTHYROXIN [Concomitant]
  20. LORAZEPAM [Concomitant]
  21. ADEROL [Concomitant]

REACTIONS (24)
  - Victim of sexual abuse [Unknown]
  - Hypertension [Unknown]
  - Diabetes mellitus [Unknown]
  - Delusional perception [Unknown]
  - Insomnia [Not Recovered/Not Resolved]
  - Hallucination [Unknown]
  - Schizophrenia [Unknown]
  - Psychological trauma [Unknown]
  - Adverse drug reaction [Unknown]
  - Speech disorder [Unknown]
  - Dysphonia [Unknown]
  - Laryngitis [Unknown]
  - Delusion of grandeur [Unknown]
  - Insomnia [Unknown]
  - Dizziness [Unknown]
  - Tremor [Unknown]
  - Asthenia [Unknown]
  - Dry mouth [Unknown]
  - Therapeutic response unexpected [Unknown]
  - Drug dose omission [Unknown]
  - Intentional drug misuse [Unknown]
  - Off label use [Unknown]
  - Drug ineffective for unapproved indication [Not Recovered/Not Resolved]
  - Drug ineffective [Unknown]
